FAERS Safety Report 11154821 (Version 1)
Quarter: 2015Q2

REPORT INFORMATION
  Report Type: Spontaneous
  Country: US (occurrence: US)
  Receive Date: 20150602
  Receipt Date: 20150602
  Transmission Date: 20150821
  Serious: No
  Sender: FDA-Public Use
  Company Number: US-NOVEN PHARMACEUTICALS, INC.-US2015000014

PATIENT
  Age: 66 Year
  Sex: Female

DRUGS (6)
  1. DAYTRANA [Suspect]
     Active Substance: METHYLPHENIDATE
     Indication: MOVEMENT DISORDER
  2. DAYTRANA [Suspect]
     Active Substance: METHYLPHENIDATE
     Indication: PAIN
     Dosage: 30 UNK, UNK
     Route: 062
  3. DAYTRANA [Suspect]
     Active Substance: METHYLPHENIDATE
     Indication: ATTENTION DEFICIT/HYPERACTIVITY DISORDER
     Dosage: 30 MG, UNK, EXPIRATION DATES: MAY-2015 AND JAN-2016
     Route: 062
     Dates: start: 2010
  4. DAYTRANA [Suspect]
     Active Substance: METHYLPHENIDATE
     Indication: PARALYSIS
  5. METHYLPHENIDATE [Concomitant]
     Active Substance: METHYLPHENIDATE
     Dosage: 10 MG, BID
  6. VITAMINS [Concomitant]
     Active Substance: VITAMINS

REACTIONS (4)
  - Drug dose omission [Unknown]
  - Drug ineffective [Unknown]
  - Therapeutic response unexpected [Unknown]
  - Drug prescribing error [Unknown]
